FAERS Safety Report 13058257 (Version 1)
Quarter: 2016Q4

REPORT INFORMATION
  Report Type: Spontaneous
  Country: US (occurrence: US)
  Receive Date: 20161223
  Receipt Date: 20161223
  Transmission Date: 20170207
  Serious: Yes (Other)
  Sender: FDA-Public Use
  Company Number: US-ASTRAZENECA-2016SF33207

PATIENT
  Age: 70 Year
  Sex: Female

DRUGS (1)
  1. ANASTRAZOLE [Suspect]
     Active Substance: ANASTROZOLE
     Indication: BREAST CANCER STAGE III
     Dosage: DOSING UNKNOWN
     Route: 048
     Dates: start: 2010

REACTIONS (3)
  - Lymphadenopathy [Unknown]
  - Breast cancer metastatic [Unknown]
  - Bone lesion [Unknown]

NARRATIVE: CASE EVENT DATE: 201405
